FAERS Safety Report 5302011-0 (Version None)
Quarter: 2007Q1

REPORT INFORMATION
  Report Type: 
  Country: None (occurrence: None)
  Receive Date: 20070201
  Receipt Date: 20061215
  Transmission Date: 20070707
  Serious: No
  Sender: FDA-Public Use
  Company Number: 2006PV026971

PATIENT
  Age: 69 Year
  Sex: Female

DRUGS (15)
  1. BYETTA [Suspect]
     Indication: DIABETES MELLITUS NON-INSULIN-DEPENDENT
     Dosage: SEE IMAGE
     Route: 058
     Dates: start: 20060401, end: 20060603
  2. BYETTA [Suspect]
     Indication: DIABETES MELLITUS NON-INSULIN-DEPENDENT
     Dosage: SEE IMAGE
     Route: 058
     Dates: start: 20060604, end: 20061001
  3. BYETTA [Suspect]
     Indication: DIABETES MELLITUS NON-INSULIN-DEPENDENT
     Dosage: SEE IMAGE
     Route: 058
     Dates: start: 20061001
  4. AMARYL [Concomitant]
  5. METFORMIN HCL [Concomitant]
  6. LEVEMIR INSULIN PEN [Concomitant]
  7. ATENOLOL [Concomitant]
  8. ASPIRIN [Concomitant]
  9. CELEBREX [Concomitant]
  10. COLACE [Concomitant]
  11. COUMADIN [Concomitant]
  12. LOTREL [Concomitant]
  13. POTASSIUM CHLORIDE [Concomitant]
  14. LYRICA [Concomitant]
  15. FUROSEMIDE [Concomitant]

REACTIONS (2)
  - ARRHYTHMIA [None]
  - HEPATIC ENZYME INCREASED [None]
